FAERS Safety Report 16542041 (Version 1)
Quarter: 2019Q3

REPORT INFORMATION
  Report Type: Spontaneous
  Country: DE (occurrence: DE)
  Receive Date: 20190708
  Receipt Date: 20190708
  Transmission Date: 20191004
  Serious: Yes (Hospitalization, Other)
  Sender: FDA-Public Use
  Company Number: DE-JNJFOC-20190700700

PATIENT
  Age: 74 Year
  Sex: Male

DRUGS (2)
  1. XARELTO [Suspect]
     Active Substance: RIVAROXABAN
     Indication: PRODUCT USED FOR UNKNOWN INDICATION
     Dosage: 20 MG
     Route: 048
     Dates: start: 201603
  2. OLMESARTAN [Concomitant]
     Active Substance: OLMESARTAN
     Dosage: UNK
     Route: 048
     Dates: start: 201906

REACTIONS (4)
  - Epistaxis [Unknown]
  - Injury [Unknown]
  - Loss of consciousness [Unknown]
  - Fall [Unknown]

NARRATIVE: CASE EVENT DATE: 201906
